FAERS Safety Report 9445145 (Version 1)
Quarter: 2013Q3

REPORT INFORMATION
  Report Type: Spontaneous
  Country: US (occurrence: US)
  Receive Date: 20130807
  Receipt Date: 20130807
  Transmission Date: 20140515
  Serious: No
  Sender: FDA-Public Use
  Company Number: US-BAXTER-2013BAX029126

PATIENT
  Age: 70 Year
  Sex: Male

DRUGS (2)
  1. GAMMAGARD LIQUID [Suspect]
     Indication: AUTOIMMUNE DISORDER
     Route: 065
     Dates: start: 20130710
  2. GAMMAGARD LIQUID [Suspect]
     Indication: NEOPLASM MALIGNANT
     Route: 065
     Dates: start: 20130712

REACTIONS (1)
  - Adverse drug reaction [Unknown]
